FAERS Safety Report 10736430 (Version 1)
Quarter: 2015Q1

REPORT INFORMATION
  Report Type: Spontaneous
  Country: BR (occurrence: BR)
  Receive Date: 20150126
  Receipt Date: 20150126
  Transmission Date: 20150721
  Serious: Yes (Disabling, Other)
  Sender: FDA-Public Use
  Company Number: BR-ASTRAZENECA-2015SE05342

PATIENT
  Age: 418 Month
  Sex: Female

DRUGS (5)
  1. TRAMAL [Concomitant]
     Active Substance: TRAMADOL
     Indication: ENDOMETRIOSIS
  2. DICLOFENAC [Concomitant]
     Active Substance: DICLOFENAC
     Indication: ENDOMETRIOSIS
  3. MORPHINE [Concomitant]
     Active Substance: MORPHINE
     Indication: ENDOMETRIOSIS
  4. ZOLADEX [Suspect]
     Active Substance: GOSERELIN ACETATE
     Indication: ENDOMETRIOSIS
     Route: 058
     Dates: start: 201407, end: 201409
  5. TYLEX [Concomitant]
     Active Substance: ACETAMINOPHEN\CODEINE PHOSPHATE
     Indication: ENDOMETRIOSIS

REACTIONS (5)
  - Peripheral swelling [Recovering/Resolving]
  - Pain [Unknown]
  - Pain in extremity [Recovering/Resolving]
  - Erythema [Unknown]
  - Gait disturbance [Recovering/Resolving]

NARRATIVE: CASE EVENT DATE: 201407
